FAERS Safety Report 14239768 (Version 1)
Quarter: 2017Q4

REPORT INFORMATION
  Report Type: Spontaneous
  Country: US (occurrence: US)
  Receive Date: 20171128
  Receipt Date: 20171128
  Transmission Date: 20180321
  Serious: Yes (Other)
  Sender: FDA-Public Use
  Company Number: None

PATIENT
  Sex: Female
  Weight: 83.25 kg

DRUGS (6)
  1. CRESTOR [Concomitant]
     Active Substance: ROSUVASTATIN CALCIUM
  2. MULTI VITAMIN [Concomitant]
     Active Substance: VITAMINS
  3. GABAPENTIN. [Suspect]
     Active Substance: GABAPENTIN
     Indication: BACK PAIN
     Dosage: ?          QUANTITY:1 CAPSULE(S);?
     Route: 048
  4. METOPROLOL. [Concomitant]
     Active Substance: METOPROLOL
  5. ASPIRIN. [Concomitant]
     Active Substance: ASPIRIN
  6. SPRIGS RESPATMAT [Concomitant]

REACTIONS (5)
  - Nerve injury [None]
  - Viral infection [None]
  - Deafness unilateral [None]
  - Dizziness [None]
  - Therapy cessation [None]

NARRATIVE: CASE EVENT DATE: 20170610
